FAERS Safety Report 8828631 (Version 2)
Quarter: 2012Q4

REPORT INFORMATION
  Report Type: Report from Study
  Country: DE (occurrence: DE)
  Receive Date: 20121005
  Receipt Date: 20121012
  Transmission Date: 20130627
  Serious: Yes (Hospitalization)
  Sender: FDA-Public Use
  Company Number: DE-SANOFI-AVENTIS-2012SA072121

PATIENT
  Age: 69 Year
  Sex: Male
  Weight: 174 kg

DRUGS (9)
  1. JEVTANA [Suspect]
     Indication: HORMONE-REFRACTORY PROSTATE CANCER
     Route: 051
     Dates: start: 20120828, end: 20120828
  2. JEVTANA [Suspect]
     Indication: HORMONE-REFRACTORY PROSTATE CANCER
     Route: 051
     Dates: start: 20120918, end: 20120918
  3. PREDNISOLON [Concomitant]
     Indication: PREMEDICATION
     Route: 048
     Dates: start: 20120927
  4. DEXAMETHASONE [Concomitant]
  5. DIMETINDENE MALEATE [Concomitant]
  6. RANITIDINE [Concomitant]
  7. GLIMEPIRIDE [Concomitant]
     Indication: TYPE II DIABETES MELLITUS
     Route: 048
     Dates: start: 20120927
  8. METFORMIN HYDROCHLORIDE [Concomitant]
     Indication: TYPE II DIABETES MELLITUS
     Route: 048
     Dates: start: 20120927
  9. RAMIPRIL [Concomitant]
     Indication: HYPERTENSION
     Route: 048
     Dates: start: 20120927

REACTIONS (3)
  - Hydronephrosis [Recovered/Resolved]
  - Pyrexia [Recovered/Resolved]
  - Urinary tract obstruction [Recovered/Resolved]
